FAERS Safety Report 15185453 (Version 2)
Quarter: 2018Q4

REPORT INFORMATION
  Report Type: Spontaneous
  Country: US (occurrence: US)
  Receive Date: 20180723
  Receipt Date: 20181107
  Transmission Date: 20190204
  Serious: No
  Sender: FDA-Public Use
  Company Number: US-BAUSCH-BL-2018-016219

PATIENT
  Sex: Female

DRUGS (1)
  1. LACRISERT [Suspect]
     Active Substance: HYDROXYPROPYL CELLULOSE
     Indication: DRY EYE
     Dosage: STARTED MANY YEARS AGO
     Route: 047

REACTIONS (1)
  - Drug ineffective [Recovered/Resolved]
